FAERS Safety Report 25424174 (Version 3)
Quarter: 2025Q2

REPORT INFORMATION
  Report Type: Spontaneous
  Country: FI (occurrence: FI)
  Receive Date: 20250611
  Receipt Date: 20250617
  Transmission Date: 20250717
  Serious: Yes (Life-Threatening, Hospitalization, Other)
  Sender: SANDOZ
  Company Number: FI-SANDOZ-SDZ2025FI040743

PATIENT
  Sex: Male

DRUGS (4)
  1. BUPROPION [Suspect]
     Active Substance: BUPROPION
     Indication: Product used for unknown indication
     Route: 065
  2. PROPRANOLOL [Suspect]
     Active Substance: PROPRANOLOL HYDROCHLORIDE
     Indication: Anxiety
     Route: 065
  3. QUETIAPINE [Suspect]
     Active Substance: QUETIAPINE
     Indication: Product used for unknown indication
     Route: 065
  4. TEMAZEPAM [Suspect]
     Active Substance: TEMAZEPAM
     Indication: Sleep disorder
     Route: 065

REACTIONS (8)
  - Bradycardia [Unknown]
  - Cardiogenic shock [Unknown]
  - Hypotension [Unknown]
  - Seizure [Unknown]
  - Cardiotoxicity [Recovered/Resolved]
  - Brain death [Recovered/Resolved]
  - Toxicity to various agents [Recovered/Resolved]
  - Intentional overdose [Unknown]
